FAERS Safety Report 5375288-3 (Version None)
Quarter: 2007Q2

REPORT INFORMATION
  Report Type: 
  Country: None (occurrence: None)
  Receive Date: 20070629
  Receipt Date: 20070619
  Transmission Date: 20071010
  Serious: Yes (Hospitalization)
  Sender: FDA-Public Use
  Company Number: US-ELI_LILLY_AND_COMPANY-US200705001731

PATIENT
  Age: 62 Year
  Sex: Female

DRUGS (4)
  1. FORTEO [Suspect]
     Indication: OSTEOPOROSIS
     Dosage: UNK, UNK
     Dates: start: 20070507, end: 20070509
  2. FORTEO [Suspect]
     Dosage: UNK, UNK
     Dates: start: 20070601
  3. FORTEO [Suspect]
     Dosage: UNK, UNK
     Dates: start: 20070101, end: 20070101
  4. CALCIUM CHLORIDE [Concomitant]
     Dosage: 1200 MG, UNK

REACTIONS (5)
  - ATRIAL FIBRILLATION [None]
  - CHEST PAIN [None]
  - INJECTION SITE ERYTHEMA [None]
  - MALAISE [None]
  - THROMBOSIS [None]
